FAERS Safety Report 11286771 (Version 2)
Quarter: 2015Q3

REPORT INFORMATION
  Report Type: Report from Study
  Country: US (occurrence: US)
  Receive Date: 20150721
  Receipt Date: 20150729
  Transmission Date: 20151125
  Serious: Yes (Hospitalization)
  Sender: FDA-Public Use
  Company Number: PHEH2015US013282

PATIENT
  Sex: Male

DRUGS (2)
  1. EXTAVIA [Suspect]
     Active Substance: INTERFERON BETA-1B
     Dosage: 0.25 MG (1 ML), QOD FOR THE FIRST MONTH
     Route: 058
  2. EXTAVIA [Suspect]
     Active Substance: INTERFERON BETA-1B
     Indication: MULTIPLE SCLEROSIS
     Dosage: HALF DOSE (0.5 ML), QOD (FOR FIRST MONTH)
     Route: 058
     Dates: start: 20150512

REACTIONS (3)
  - Hypokinesia [Unknown]
  - Asthenia [Unknown]
  - Amnesia [Unknown]
